FAERS Safety Report 5349280-9 (Version None)
Quarter: 2007Q2

REPORT INFORMATION
  Report Type: 
  Country: None (occurrence: None)
  Receive Date: 20070607
  Receipt Date: 20070605
  Transmission Date: 20071010
  Serious: Yes (Other)
  Sender: FDA-Public Use
  Company Number: A0654232A

PATIENT
  Age: 56 Year
  Sex: Female

DRUGS (3)
  1. AVANDAMET [Suspect]
     Route: 048
     Dates: start: 20061001
  2. ZOLOFT [Concomitant]
  3. AMBIEN [Concomitant]

REACTIONS (5)
  - DYSPNOEA [None]
  - FLUID RETENTION [None]
  - HEPATIC ENZYME INCREASED [None]
  - NEURALGIA [None]
  - WEIGHT INCREASED [None]
